FAERS Safety Report 14288413 (Version 1)
Quarter: 2017Q4

REPORT INFORMATION
  Report Type: Report from Study
  Country: US (occurrence: US)
  Receive Date: 20171214
  Receipt Date: 20171214
  Transmission Date: 20180321
  Serious: Yes (Death, Other)
  Sender: FDA-Public Use
  Company Number: US-GILEAD-2017-0310556

PATIENT
  Age: 70 Year
  Sex: Male

DRUGS (12)
  1. AMBRISENTAN [Suspect]
     Active Substance: AMBRISENTAN
     Indication: PULMONARY HYPERTENSION
     Dosage: 10 MG, QD
     Route: 065
  2. CREON [Concomitant]
     Active Substance: PANCRELIPASE AMYLASE\PANCRELIPASE LIPASE\PANCRELIPASE PROTEASE
  3. ADCIRCA [Concomitant]
     Active Substance: TADALAFIL
  4. LANOXIN [Concomitant]
     Active Substance: DIGOXIN
  5. METOLAZONE. [Concomitant]
     Active Substance: METOLAZONE
  6. LASIX [Concomitant]
     Active Substance: FUROSEMIDE
  7. VYTORIN [Concomitant]
     Active Substance: EZETIMIBE\SIMVASTATIN
  8. METAMUCIL                          /00091301/ [Concomitant]
     Active Substance: PSYLLIUM HUSK
  9. WARFARIN [Concomitant]
     Active Substance: WARFARIN
  10. CARVEDILOL. [Concomitant]
     Active Substance: CARVEDILOL
  11. HUMALOG [Concomitant]
     Active Substance: INSULIN LISPRO
  12. NORCO [Concomitant]
     Active Substance: ACETAMINOPHEN\HYDROCODONE BITARTRATE

REACTIONS (1)
  - Death [Fatal]

NARRATIVE: CASE EVENT DATE: 20171114
